FAERS Safety Report 5659486-7 (Version None)
Quarter: 2008Q1

REPORT INFORMATION
  Report Type: 
  Country: None (occurrence: None)
  Receive Date: 20080311
  Receipt Date: 20080303
  Transmission Date: 20080703
  Serious: Yes (Death)
  Sender: FDA-Public Use
  Company Number: PHBS2008JP03013

PATIENT
  Age: 87 Year
  Sex: Male

DRUGS (1)
  1. GABALON [Suspect]
     Indication: MUSCLE SPASTICITY
     Dosage: UNK, UNK
     Route: 037
     Dates: start: 20060615, end: 20061204

REACTIONS (5)
  - DEPRESSED LEVEL OF CONSCIOUSNESS [None]
  - PURULENCE [None]
  - PYREXIA [None]
  - SEPTIC SHOCK [None]
  - STREPTOCOCCAL INFECTION [None]
